FAERS Safety Report 25858407 (Version 2)
Quarter: 2025Q4

REPORT INFORMATION
  Report Type: Spontaneous
  Country: EU (occurrence: EU)
  Receive Date: 20250929
  Receipt Date: 20251009
  Transmission Date: 20260117
  Serious: Yes (Life-Threatening, Hospitalization, Other)
  Sender: AUROBINDO
  Company Number: EU-MLMSERVICE-20250908-PI640359-00218-1

PATIENT
  Age: 79 Year
  Sex: Male

DRUGS (3)
  1. METHOTREXATE [Suspect]
     Active Substance: METHOTREXATE
     Indication: Arthralgia
     Dosage: 10 MILLIGRAM, EVERY WEEK (PRESCRIBED MTX 10 MG WEEKLY)
     Route: 065
  2. METHOTREXATE [Suspect]
     Active Substance: METHOTREXATE
     Dosage: 10 MILLIGRAM, ONCE A DAY
     Route: 065
  3. PREDNISONE [Suspect]
     Active Substance: PREDNISONE
     Indication: Product used for unknown indication
     Dosage: 40 MILLIGRAM, ONCE A DAY
     Route: 048

REACTIONS (23)
  - Toxicity to various agents [Recovered/Resolved]
  - Incorrect dose administered [Unknown]
  - Product communication issue [Recovered/Resolved]
  - Pancytopenia [Recovered/Resolved]
  - Stomatitis [Recovering/Resolving]
  - Hepatic enzyme increased [Recovered/Resolved]
  - Skin ulcer [Recovering/Resolving]
  - Mouth ulceration [Unknown]
  - Inappropriate schedule of product administration [Recovering/Resolving]
  - Circumstance or information capable of leading to device use error [Unknown]
  - Leukopenia [Recovered/Resolved]
  - Thrombocytopenia [Recovered/Resolved]
  - Rash [Recovered/Resolved]
  - Accidental overdose [Recovered/Resolved]
  - Skin lesion [Recovered/Resolved]
  - Mucosal inflammation [Recovered/Resolved]
  - Normocytic anaemia [Recovered/Resolved]
  - Aspartate aminotransferase abnormal [Recovered/Resolved]
  - Alanine aminotransferase abnormal [Recovered/Resolved]
  - Erythema [Recovered/Resolved]
  - Ulcer [Recovered/Resolved]
  - Therapy change [Unknown]
  - Therapy cessation [Unknown]
